FAERS Safety Report 4598522-6 (Version None)
Quarter: 2005Q1

REPORT INFORMATION
  Report Type: 
  Country: None (occurrence: None)
  Receive Date: 20050304
  Receipt Date: 20050223
  Transmission Date: 20050727
  Serious: Yes (Hospitalization)
  Sender: FDA-Public Use
  Company Number: US-GLAXOSMITHKLINE-A0546902A

PATIENT
  Age: 84 Year
  Sex: Male
  Weight: 81 kg

DRUGS (3)
  1. ECOTRIN REGULAR STRENGTH TABLETS [Suspect]
     Route: 048
     Dates: start: 19850101
  2. IRON [Concomitant]
     Route: 048
  3. VIOXX [Concomitant]
     Indication: ARTHRITIS
     Route: 048

REACTIONS (1)
  - CORONARY ARTERY STENOSIS [None]
